FAERS Safety Report 9885133 (Version 2)
Quarter: 2014Q1

REPORT INFORMATION
  Report Type: Spontaneous
  Country: CO (occurrence: CO)
  Receive Date: 20140210
  Receipt Date: 20140210
  Transmission Date: 20141002
  Serious: Yes (Death, Hospitalization, Other)
  Sender: FDA-Public Use
  Company Number: CO-BAYER-2013-148123

PATIENT
  Age: 90 Year
  Sex: Female

DRUGS (6)
  1. ULTRAVIST? 300 [Suspect]
     Indication: ANGIOGRAM
     Dosage: UNK
     Route: 042
     Dates: start: 20130910, end: 20130910
  2. HYDROXYZINE [Suspect]
  3. LOSARTAN [Concomitant]
  4. METOPROLOL [Concomitant]
  5. CLOPIDOGREL [Concomitant]
  6. ASA [Concomitant]

REACTIONS (10)
  - Death [Fatal]
  - Pyrexia [None]
  - Chills [None]
  - Muscle disorder [None]
  - Pallor [None]
  - Malaise [None]
  - Somnolence [Not Recovered/Not Resolved]
  - Depressed level of consciousness [Not Recovered/Not Resolved]
  - Hypoxia [Not Recovered/Not Resolved]
  - Leukopenia [None]
